FAERS Safety Report 7142444-3 (Version None)
Quarter: 2010Q4

REPORT INFORMATION
  Report Type: 
  Country: None (occurrence: None)
  Receive Date: 20101207
  Receipt Date: 20101129
  Transmission Date: 20110411
  Serious: Yes (Other)
  Sender: FDA-Public Use
  Company Number: US-PFIZER INC-2010159822

PATIENT
  Sex: Female
  Weight: 143.31 kg

DRUGS (16)
  1. LYRICA [Suspect]
     Indication: FIBROMYALGIA
     Dosage: 150 MG, 2X/DAY
     Route: 048
     Dates: start: 20091201, end: 20101101
  2. HYDROCHLOROTHIAZIDE [Concomitant]
     Dosage: UNK
     Dates: start: 20091201
  3. SYNTHROID [Concomitant]
     Dosage: UNK
     Dates: start: 20091201
  4. PREDNISONE [Concomitant]
     Dosage: 5 MG, UNK
     Dates: start: 20091201
  5. MELOXICAM [Concomitant]
     Dosage: UNK
     Dates: start: 20091201
  6. PROCHLORPERAZINE [Concomitant]
     Dosage: UNK
     Dates: start: 20091201
  7. ROPINIROLE [Concomitant]
     Dosage: UNK
     Dates: start: 20091201
  8. PAROXETINE [Concomitant]
     Dosage: UNK
     Dates: start: 20091201
  9. VALSARTAN [Concomitant]
     Dosage: UNK
     Dates: start: 20091201
  10. OXYGEN [Concomitant]
     Dosage: UNK
     Dates: start: 20091201
  11. OMEPRAZOLE [Concomitant]
     Dosage: UNK
     Dates: start: 20091201
  12. ATIVAN [Concomitant]
     Dosage: 1 MG, UNK
     Dates: start: 20091201
  13. OXYCODONE [Concomitant]
     Dosage: 10 MG, UNK
     Dates: start: 20091201
  14. SERTRALINE [Concomitant]
     Dosage: 100 MG, 2X/DAY
     Dates: start: 20091201
  15. ALBUTEROL [Concomitant]
     Dosage: UNK
     Dates: start: 20091201
  16. SIMVASTATIN [Concomitant]
     Dosage: UNK
     Dates: start: 20091201

REACTIONS (7)
  - CHRONIC OBSTRUCTIVE PULMONARY DISEASE [None]
  - HEADACHE [None]
  - HYPERTENSION [None]
  - INTERVERTEBRAL DISC PROTRUSION [None]
  - JOINT SWELLING [None]
  - NAUSEA [None]
  - SYSTEMIC LUPUS ERYTHEMATOSUS [None]
